FAERS Safety Report 20376696 (Version 1)
Quarter: 2022Q1

REPORT INFORMATION
  Report Type: Spontaneous
  Country: CN (occurrence: CN)
  Receive Date: 20220125
  Receipt Date: 20220125
  Transmission Date: 20220423
  Serious: Yes (Disabling)
  Sender: FDA-Public Use
  Company Number: CN-PFIZER INC-202200123586

PATIENT
  Age: 69 Year
  Sex: Female
  Weight: 69 kg

DRUGS (8)
  1. LIPITOR [Suspect]
     Active Substance: ATORVASTATIN CALCIUM
     Indication: Hyperlipidaemia
     Dosage: 20 MG, 1X/DAY
     Route: 048
     Dates: start: 20220111, end: 20220113
  2. RIVAROXABAN [Concomitant]
     Active Substance: RIVAROXABAN
     Indication: Venous thrombosis
     Dosage: 15 MG, 1X/DAY
     Route: 048
     Dates: start: 20220111, end: 20220117
  3. DE LI DUO [Concomitant]
     Indication: Neuralgia
     Dosage: 100 MG, 3X/DAY
     Route: 048
     Dates: start: 20220111, end: 20220117
  4. FLUPENTIXOL DIHYDROCHLORIDE\MELITRACEN HYDROCHLORIDE [Concomitant]
     Active Substance: FLUPENTIXOL DIHYDROCHLORIDE\MELITRACEN HYDROCHLORIDE
     Indication: Depression
     Dosage: 1 DF, 1X/DAY
     Route: 048
     Dates: start: 20211215, end: 20220117
  5. GLUCOPHAGE [Concomitant]
     Active Substance: METFORMIN HYDROCHLORIDE
     Indication: Type 2 diabetes mellitus
     Dosage: 500 MG, 2X/DAY
     Route: 048
     Dates: start: 20220111, end: 20220117
  6. IMURAN [Concomitant]
     Active Substance: AZATHIOPRINE
     Indication: Myelitis
     Dosage: 50 MG, 2X/DAY
     Route: 048
     Dates: start: 20211114, end: 20220117
  7. JANUVIA [Concomitant]
     Active Substance: SITAGLIPTIN PHOSPHATE
     Indication: Type 2 diabetes mellitus
     Dosage: 100 MG, 1X/DAY
     Route: 048
     Dates: start: 20220111, end: 20220117
  8. PREDNISONE ACETATE [Concomitant]
     Active Substance: PREDNISONE ACETATE
     Indication: Myelitis
     Dosage: 40 MG, 1X/DAY
     Route: 048
     Dates: start: 20211228, end: 20220114

REACTIONS (1)
  - Drug eruption [Recovering/Resolving]

NARRATIVE: CASE EVENT DATE: 20220113
